FAERS Safety Report 8968847 (Version 1)
Quarter: 2012Q4

REPORT INFORMATION
  Report Type: Report from Study
  Country: US (occurrence: US)
  Receive Date: 20121218
  Receipt Date: 20121218
  Transmission Date: 20130627
  Serious: Yes (Hospitalization)
  Sender: FDA-Public Use
  Company Number: US-009507513-1212USA004510

PATIENT

DRUGS (12)
  1. TEMODAR [Suspect]
     Indication: GLIOBLASTOMA MULTIFORME
     Dosage: 140 mg, qd
     Route: 048
     Dates: start: 20090720, end: 20090831
  2. BEVACIZUMAB [Suspect]
     Indication: GLIOBLASTOMA MULTIFORME
     Dosage: 753 mg, 1 in 2 week
     Route: 042
     Dates: start: 20090720, end: 20090831
  3. BEVACIZUMAB [Suspect]
     Dosage: UNK
     Dates: start: 20090930
  4. BEVACIZUMAB [Suspect]
     Dosage: 707mg once in 2 weeks (latest dose 13-sep-2010)
     Route: 042
     Dates: start: 20100913
  5. EVEROLIMUS [Suspect]
     Indication: GLIOBLASTOMA MULTIFORME
     Dosage: 10 mg, qd
     Route: 048
     Dates: start: 20090720
  6. EVEROLIMUS [Suspect]
     Dosage: UNK UNK, qd
     Route: 048
     Dates: start: 20090930, end: 20091030
  7. EVEROLIMUS [Suspect]
     Dosage: latest dose taken was 26-SEP-2010
     Route: 048
     Dates: start: 20091110
  8. KEPPRA [Concomitant]
     Indication: CONVULSION PROPHYLAXIS
     Dosage: 1000 mg, tid
     Dates: start: 20090708
  9. TRICOR (FENOFIBRATE) [Concomitant]
     Indication: HYPERLIPIDAEMIA
     Dosage: 145 mg , qd
     Dates: start: 20090708
  10. TRICOR (FENOFIBRATE) [Concomitant]
     Dosage: 145 mg half, qd
     Route: 048
     Dates: start: 20100712
  11. MICARDIS HCT [Concomitant]
     Indication: HYPERTENSION
     Dosage: 80 mg- 25 qd
     Dates: start: 20100712
  12. ZOFRAN [Concomitant]
     Indication: NAUSEA
     Dosage: 8 mg , 8th hourly,  prn
     Dates: start: 20090715

REACTIONS (4)
  - Pulmonary embolism [Unknown]
  - Deep vein thrombosis [Unknown]
  - Pneumonitis [Recovered/Resolved]
  - Convulsion [Recovered/Resolved]
